FAERS Safety Report 7203645-9 (Version None)
Quarter: 2010Q4

REPORT INFORMATION
  Report Type: 
  Country: None (occurrence: None)
  Receive Date: 20101220
  Receipt Date: 20101203
  Transmission Date: 20110411
  Serious: Yes (Hospitalization)
  Sender: FDA-Public Use
  Company Number: 2010005286

PATIENT
  Age: 79 Year
  Sex: Female
  Weight: 43.5453 kg

DRUGS (1)
  1. TARCEVA [Suspect]
     Indication: NON-SMALL CELL LUNG CANCER
     Dosage: (150 MG,EVERY OTHER DAY),ORAL
     Route: 048
     Dates: start: 20100901

REACTIONS (3)
  - HAEMORRHAGE [None]
  - NECK PAIN [None]
  - THROMBOSIS [None]
